FAERS Safety Report 9333947 (Version 1)
Quarter: 2013Q2

REPORT INFORMATION
  Report Type: Spontaneous
  Country: US (occurrence: US)
  Receive Date: 20130606
  Receipt Date: 20130606
  Transmission Date: 20140414
  Serious: No
  Sender: FDA-Public Use
  Company Number: US-AMGEN-USASP2013003488

PATIENT
  Age: 73 Year
  Sex: Female

DRUGS (8)
  1. PROLIA [Suspect]
     Indication: OSTEOPOROSIS POSTMENOPAUSAL
     Dosage: UNK
     Dates: start: 201208
  2. LISINOPRIL [Concomitant]
  3. AMLODIPINE [Concomitant]
  4. CATAPRESS [Concomitant]
  5. TOPROL [Concomitant]
  6. LESCOL [Concomitant]
  7. VITAMINS                           /00067501/ [Concomitant]
  8. FISH OIL [Concomitant]

REACTIONS (2)
  - Nausea [Recovered/Resolved]
  - Pain [Recovered/Resolved]
